FAERS Safety Report 9664818 (Version 2)
Quarter: 2013Q4

REPORT INFORMATION
  Report Type: Report from Study
  Country: JP (occurrence: JP)
  Receive Date: 20131101
  Receipt Date: 20131125
  Transmission Date: 20140711
  Serious: Yes (Death, Other)
  Sender: FDA-Public Use
  Company Number: JP-TAKEDA-2013TJP002349

PATIENT
  Age: 90 Year
  Sex: Female
  Weight: 50 kg

DRUGS (9)
  1. LANSOPRAZOLE [Suspect]
     Indication: PROPHYLAXIS AGAINST GASTROINTESTINAL ULCER
     Dosage: 15 MG, QD
     Route: 048
     Dates: start: 20120831, end: 20130820
  2. BAYASPIRIN [Concomitant]
     Indication: THROMBOSIS PROPHYLAXIS
     Dosage: 100 MG, 1 DAYS
     Route: 048
     Dates: end: 20130820
  3. MAGLAX [Concomitant]
     Dosage: 500 MG, 1 DAYS
     Route: 048
  4. ALLEGRA [Concomitant]
     Dosage: 120 MG, 1 DAYS
     Route: 048
  5. LASIX                              /00032601/ [Concomitant]
     Dosage: 20 MG, 1 DAYS
     Route: 048
  6. EPADEL-S [Concomitant]
     Dosage: 1800 MG, 1 DAYS
     Route: 048
  7. ACTONEL [Concomitant]
     Dosage: 17.5 MG, 1/WEEK
     Route: 048
  8. SELARA [Concomitant]
     Dosage: 100 MG, 1 DAYS
     Route: 048
  9. ALOSENN                            /00476901/ [Concomitant]
     Dosage: 1 G, 1 DAYS
     Route: 048

REACTIONS (1)
  - Cardiac failure congestive [Fatal]
